FAERS Safety Report 18587211 (Version 2)
Quarter: 2021Q1

REPORT INFORMATION
  Report Type: Spontaneous
  Country: US (occurrence: US)
  Receive Date: 20201207
  Receipt Date: 20210111
  Transmission Date: 20210419
  Serious: No
  Sender: FDA-Public Use
  Company Number: US-PFIZER INC-2020479564

PATIENT
  Age: 63 Year
  Sex: Male
  Weight: 113.38 kg

DRUGS (2)
  1. INLYTA [Suspect]
     Active Substance: AXITINIB
     Indication: RENAL CELL CARCINOMA
     Dosage: 5 MG, 2X/DAY, (TAKE 1 TABLET, EVERY 12 HOURS)
     Route: 048
     Dates: start: 20201120
  2. CARVEDILOL. [Concomitant]
     Active Substance: CARVEDILOL
     Indication: BLOOD PRESSURE ABNORMAL
     Dosage: UNK

REACTIONS (2)
  - Dysphonia [Unknown]
  - Blister [Unknown]

NARRATIVE: CASE EVENT DATE: 2020
